FAERS Safety Report 5673492-8 (Version None)
Quarter: 2008Q2

REPORT INFORMATION
  Report Type: 
  Country: None (occurrence: None)
  Receive Date: 20080222
  Receipt Date: 20080108
  Transmission Date: 20081010
  Serious: No
  Sender: FDA-Public Use
  Company Number: 2008SP001126

PATIENT

DRUGS (1)
  1. NOXAFIL [Suspect]
     Indication: MUCORMYCOSIS

REACTIONS (1)
  - MALABSORPTION [None]
